FAERS Safety Report 11625254 (Version 2)
Quarter: 2015Q4

REPORT INFORMATION
  Report Type: Spontaneous
  Country: FR (occurrence: FR)
  Receive Date: 20151013
  Receipt Date: 20151020
  Transmission Date: 20160304
  Serious: Yes (Other)
  Sender: FDA-Public Use
  Company Number: FR-B.I. PHARMACEUTICALS,INC./RIDGEFIELD-2015-BI-56109YA

PATIENT
  Age: 77 Year
  Sex: Male

DRUGS (2)
  1. SINEMET [Suspect]
     Active Substance: CARBIDOPA\LEVODOPA
     Indication: PARKINSON^S DISEASE
     Dosage: DOSE PER APPLICATION: 100MG/10MG; DAILY DOSE: 200MG/20MG
     Route: 048
  2. TAMSULOSINA [Suspect]
     Active Substance: TAMSULOSIN HYDROCHLORIDE
     Indication: BENIGN PROSTATIC HYPERPLASIA
     Dosage: 0.4 MG
     Route: 048
     Dates: end: 20150915

REACTIONS (6)
  - Loss of consciousness [Unknown]
  - Malaise [Unknown]
  - Vision blurred [Unknown]
  - Hypotension [Recovered/Resolved]
  - Fall [Recovered/Resolved]
  - Injury [Unknown]

NARRATIVE: CASE EVENT DATE: 20140914
